FAERS Safety Report 21684528 (Version 3)
Quarter: 2023Q1

REPORT INFORMATION
  Report Type: Report from Study
  Country: US (occurrence: US)
  Receive Date: 20221205
  Receipt Date: 20230202
  Transmission Date: 20230418
  Serious: Yes (Other)
  Sender: FDA-Public Use
  Company Number: US-BAYER-2022A151458

PATIENT
  Age: 52 Year
  Sex: Male

DRUGS (4)
  1. STIVARGA [Suspect]
     Active Substance: REGORAFENIB
     Indication: Hepatocellular carcinoma
     Dosage: 80 MG, QD FOR 7 DAYS
     Dates: start: 20221025, end: 20221031
  2. STIVARGA [Suspect]
     Active Substance: REGORAFENIB
     Indication: Hepatocellular carcinoma
     Dosage: 120 MG,QD WITH WHOLE WITH A LOW-FAT BREAKFAST
     Dates: start: 20221101, end: 20221107
  3. STIVARGA [Suspect]
     Active Substance: REGORAFENIB
     Indication: Hepatocellular carcinoma
     Dosage: UNK
  4. STIVARGA [Suspect]
     Active Substance: REGORAFENIB
     Indication: Hepatocellular carcinoma
     Dosage: 160 MG, QD DAILY FOR 3 WEEKS ON AND 1 WEEK OFF EVERY 28 DAY CYCLE
     Route: 048

REACTIONS (12)
  - Pyrexia [Not Recovered/Not Resolved]
  - Aphonia [Recovered/Resolved]
  - Abdominal pain upper [Unknown]
  - Abdominal pain upper [Not Recovered/Not Resolved]
  - Appetite disorder [Not Recovered/Not Resolved]
  - Drug interaction [Not Recovered/Not Resolved]
  - Decreased appetite [None]
  - Off label use [None]
  - Drug ineffective [None]
  - Throat irritation [Not Recovered/Not Resolved]
  - Weight decreased [Not Recovered/Not Resolved]
  - Glucose tolerance impaired [Not Recovered/Not Resolved]

NARRATIVE: CASE EVENT DATE: 20221025
